FAERS Safety Report 4262910-8 (Version None)
Quarter: 2004Q1

REPORT INFORMATION
  Report Type: 
  Country: None (occurrence: None)
  Receive Date: 20040102
  Receipt Date: 20040102
  Transmission Date: 20041129
  Serious: Yes (Life-Threatening, Hospitalization)
  Sender: FDA-Public Use
  Company Number: None

PATIENT
  Age: 69 Year
  Sex: Male
  Weight: 90 kg

DRUGS (7)
  1. POLYGAN SD 5% AMERICAN RED CROSS [Suspect]
     Indication: DEMYELINATING POLYNEUROPATHY
     Dosage: 1 GM/KG QD X 2 INTRAVENOUS
     Route: 042
     Dates: start: 20030811, end: 20030811
  2. DONEPEZIL HCL [Concomitant]
  3. GEMFIBRAZOL [Concomitant]
  4. FESO4 [Concomitant]
  5. RABEPRAZOLE [Concomitant]
  6. VIT E [Concomitant]
  7. CA/ VIT D [Concomitant]

REACTIONS (3)
  - ACUTE MYOCARDIAL INFARCTION [None]
  - CANDIDA SEPSIS [None]
  - PNEUMONIA ASPIRATION [None]
